FAERS Safety Report 6552739-X (Version None)
Quarter: 2010Q1

REPORT INFORMATION
  Report Type: 
  Country: None (occurrence: None)
  Receive Date: 20100121
  Receipt Date: 20100106
  Transmission Date: 20100710
  Serious: Yes (Death)
  Sender: FDA-Public Use
  Company Number: KV201000005

PATIENT
  Age: 59 Year
  Sex: Male

DRUGS (11)
  1. ISOSORBIDE MONONITRATE [Suspect]
     Indication: DRUG USE FOR UNKNOWN INDICATION
     Dosage: 30 MG, QD, ORAL
     Route: 048
  2. ATENOLOL [Concomitant]
  3. LIPITOR [Concomitant]
  4. DIOVAN [Concomitant]
  5. ASPIRIN [Concomitant]
  6. JANTOVEN [Concomitant]
  7. HYDROCODONE W/APAP (HYDROCODONE, PARACETAMOL) [Concomitant]
  8. ACYCLOVIR /00587301/ (ACICLOVIR) [Concomitant]
  9. NORVASC /00972401/ (AMLODIPINE) [Concomitant]
  10. GEMFIBROZIL [Concomitant]
  11. AMLODIPINE [Concomitant]

REACTIONS (7)
  - BACK PAIN [None]
  - CARDIO-RESPIRATORY ARREST [None]
  - CORONARY ARTERY DISEASE [None]
  - ELECTROMECHANICAL DISSOCIATION [None]
  - FALL [None]
  - MUSCLE STRAIN [None]
  - PULSE ABSENT [None]
